FAERS Safety Report 18357711 (Version 1)
Quarter: 2020Q4

REPORT INFORMATION
  Report Type: Spontaneous
  Country: NL (occurrence: NL)
  Receive Date: 20201008
  Receipt Date: 20201008
  Transmission Date: 20210114
  Serious: Yes (Life-Threatening, Hospitalization, Other)
  Sender: FDA-Public Use
  Company Number: NL-AUROBINDO-AUR-APL-2020-051078

PATIENT
  Age: 32 Year
  Sex: Female
  Weight: 100 kg

DRUGS (2)
  1. EMESAFENE [Interacting]
     Active Substance: MECLIZINE\PYRIDOXINE
     Indication: MORNING SICKNESS
     Dosage: 1 DOSAGE FORM, ONCE A DAY (1X PER DAY 1 PIECE 10 MG)
     Route: 065
     Dates: start: 201908
  2. CITALOPRAM [Suspect]
     Active Substance: CITALOPRAM HYDROBROMIDE
     Indication: PRODUCT USED FOR UNKNOWN INDICATION
     Dosage: 30 MILLIGRAM (COATED TABLET)
     Route: 065

REACTIONS (4)
  - Renal colic [Recovered/Resolved]
  - Drug interaction [Recovered/Resolved]
  - Hydronephrosis [Recovered/Resolved]
  - Renal papillary necrosis [Recovered/Resolved]

NARRATIVE: CASE EVENT DATE: 20191013
